FAERS Safety Report 6691311-8 (Version None)
Quarter: 2010Q2

REPORT INFORMATION
  Report Type: 
  Country: None (occurrence: None)
  Receive Date: 20100419
  Receipt Date: 20100407
  Transmission Date: 20101027
  Serious: Yes (Hospitalization)
  Sender: FDA-Public Use
  Company Number: DSJ-2010-05777

PATIENT
  Age: 62 Year
  Sex: Female

DRUGS (3)
  1. BENICAR HCT [Suspect]
     Indication: HYPERTENSION
     Dosage: 40/12.5MG (1 IN 1 D), PER ORAL
     Route: 048
     Dates: start: 20080101, end: 20090601
  2. PENFLURIDOL                  (PENFLURIDOL) [Concomitant]
  3. BIPERIDEN        (BIPERDEN)            (DIPERIDEN) [Concomitant]

REACTIONS (5)
  - ABDOMINAL PAIN [None]
  - DRUG INEFFECTIVE [None]
  - HEADACHE [None]
  - INSOMNIA [None]
  - OEDEMA PERIPHERAL [None]
